FAERS Safety Report 23067578 (Version 1)
Quarter: 2023Q4

REPORT INFORMATION
  Report Type: Spontaneous
  Country: US (occurrence: US)
  Receive Date: 20231016
  Receipt Date: 20231016
  Transmission Date: 20240110
  Serious: No
  Sender: FDA-Public Use
  Company Number: US-LEO Pharma-363884

PATIENT
  Age: 44 Year
  Sex: Female

DRUGS (2)
  1. ADBRY [Suspect]
     Active Substance: TRALOKINUMAB-LDRM
     Indication: Product used for unknown indication
     Dosage: MAINTENANCE DOSING 2 SYRINGES (INTO 2 SITES) EVERY 2 WEEKS THEREAFTER
  2. ADBRY [Suspect]
     Active Substance: TRALOKINUMAB-LDRM
     Indication: Product used for unknown indication
     Dosage: INJECT 4 SYRINGES UNDER THE SKIN (DIVIDED INTO 4 SITES FOR 1 DOSE) ON WEEK 0
     Dates: start: 202308

REACTIONS (1)
  - Viral infection [Unknown]
